FAERS Safety Report 14563141 (Version 1)
Quarter: 2018Q1

REPORT INFORMATION
  Report Type: Spontaneous
  Country: DE (occurrence: DE)
  Receive Date: 20180222
  Receipt Date: 20180222
  Transmission Date: 20180509
  Serious: Yes (Other)
  Sender: FDA-Public Use
  Company Number: DE-TEVA-2018-DE-858041

PATIENT
  Age: 50 Year
  Sex: Male

DRUGS (3)
  1. PHENPRO.-RATIOPHARM 3 MG TABLETTEN [Interacting]
     Active Substance: PHENPROCOUMON
     Dosage: INTAKE ABOUT 8 YEARS
     Route: 048
     Dates: start: 2009
  2. DOXYCYCLIN TABLETTEN [Suspect]
     Active Substance: DOXYCYCLINE
     Route: 048
  3. MAGNESIUM 250 MG ALDI [Interacting]
     Active Substance: MINERALS\VITAMINS
     Route: 048

REACTIONS (5)
  - International normalised ratio increased [Unknown]
  - Rheumatic disorder [Unknown]
  - Drug interaction [Unknown]
  - Psoriasis [Unknown]
  - Muscle spasms [Unknown]
